FAERS Safety Report 13882296 (Version 2)
Quarter: 2017Q4

REPORT INFORMATION
  Report Type: Report from Study
  Country: BR (occurrence: BR)
  Receive Date: 20170818
  Receipt Date: 20171013
  Transmission Date: 20180320
  Serious: Yes (Death, Other)
  Sender: FDA-Public Use
  Company Number: BR-ROCHE-1976578

PATIENT
  Sex: Male
  Weight: 80 kg

DRUGS (1)
  1. ACTEMRA [Suspect]
     Active Substance: TOCILIZUMAB
     Indication: RHEUMATOID ARTHRITIS
     Route: 042

REACTIONS (7)
  - Pneumonia [Fatal]
  - Metastasis [Unknown]
  - Treatment noncompliance [Unknown]
  - Arthralgia [Not Recovered/Not Resolved]
  - Hepatic cirrhosis [Fatal]
  - Liver disorder [Unknown]
  - Hepatic cancer [Fatal]
